FAERS Safety Report 4567379-1 (Version None)
Quarter: 2005Q1

REPORT INFORMATION
  Report Type: 
  Country: None (occurrence: None)
  Receive Date: 20050127
  Receipt Date: 20040118
  Transmission Date: 20050727
  Serious: Yes (Hospitalization)
  Sender: FDA-Public Use
  Company Number: 105758ISR

PATIENT
  Age: 25 Year
  Sex: Male

DRUGS (6)
  1. VINCRISTINE [Suspect]
     Indication: HODGKIN'S DISEASE
     Dosage: 2 MILLIGRAM INTRAVENOUS (NOS)
     Route: 042
     Dates: start: 20020325, end: 20020816
  2. DOXORUBICIN HCL [Suspect]
     Indication: HODGKIN'S DISEASE
     Dosage: INTRAVENOUS (NOS)
     Route: 042
     Dates: start: 20020318, end: 20020809
  3. BLEOMYCIN [Suspect]
     Indication: HODGKIN'S DISEASE
     Dosage: 18 MILLIGRAM, INTRAVENOUS (NOS)
     Route: 042
     Dates: start: 20020325, end: 20020816
  4. CYCLOPHOSPHAMIDE [Suspect]
     Indication: HODGKIN'S DISEASE
     Dosage: INTRAVENOUS (NOS)
     Route: 042
     Dates: start: 20020318, end: 20020809
  5. PROCARBAZINEHYDROCHLORIDE [Suspect]
     Indication: HODGKIN'S DISEASE
     Dosage: 150 MILLIGRAM ORAL
     Route: 048
     Dates: start: 20020319, end: 20020816
  6. ETOPOSIDE [Suspect]
     Indication: HODGKIN'S DISEASE
     Dosage: INTRAVENOUS (NOS)
     Route: 042
     Dates: start: 20020318, end: 20020811

REACTIONS (1)
  - ACUTE MYELOID LEUKAEMIA [None]
